FAERS Safety Report 17602256 (Version 1)
Quarter: 2020Q1

REPORT INFORMATION
  Report Type: Spontaneous
  Country: CA (occurrence: CA)
  Receive Date: 20200331
  Receipt Date: 20200331
  Transmission Date: 20200409
  Serious: Yes (Hospitalization)
  Sender: FDA-Public Use
  Company Number: CA-ROCHE-2571944

PATIENT
  Age: 70 Year
  Sex: Male

DRUGS (6)
  1. PREDNISONE. [Concomitant]
     Active Substance: PREDNISONE
     Indication: RENAL TRANSPLANT
     Route: 065
  2. MYCOPHENOLATE MOFETIL. [Suspect]
     Active Substance: MYCOPHENOLATE MOFETIL
     Indication: RENAL TRANSPLANT
     Route: 065
  3. PREDNISONE. [Concomitant]
     Active Substance: PREDNISONE
     Route: 065
  4. TACROLIMUS. [Suspect]
     Active Substance: TACROLIMUS
     Indication: RENAL TRANSPLANT
     Route: 065
  5. TACROLIMUS. [Suspect]
     Active Substance: TACROLIMUS
     Route: 065
  6. MICAFUNGIN SODIUM [Suspect]
     Active Substance: MICAFUNGIN SODIUM
     Indication: ORAL CANDIDIASIS
     Route: 065

REACTIONS (25)
  - Diarrhoea [Recovered/Resolved]
  - Failure to thrive [Recovered/Resolved]
  - Haematocrit decreased [Recovered/Resolved]
  - Hypophagia [Recovered/Resolved]
  - Necrotising oesophagitis [Recovered/Resolved]
  - Malaise [Recovered/Resolved]
  - Unresponsive to stimuli [Recovered/Resolved]
  - Dyspnoea [Recovered/Resolved]
  - Aspergillus infection [Recovered/Resolved]
  - Enterococcal infection [Recovered/Resolved]
  - Pneumonia [Recovered/Resolved]
  - Respiratory failure [Recovered/Resolved]
  - Urinary tract infection bacterial [Recovered/Resolved]
  - Oral candidiasis [Recovered/Resolved]
  - Hypoxia [Recovered/Resolved]
  - Productive cough [Recovered/Resolved]
  - Reactive gastropathy [Recovered/Resolved]
  - Acute respiratory failure [Recovered/Resolved]
  - Delayed graft function [Recovered/Resolved]
  - Renal tubular necrosis [Recovered/Resolved]
  - Blood pressure systolic decreased [Recovered/Resolved]
  - Gastrointestinal haemorrhage [Recovered/Resolved]
  - Oesophageal stenosis [Recovered/Resolved]
  - Small intestinal haemorrhage [Recovered/Resolved]
  - Staphylococcal infection [Recovered/Resolved]
